FAERS Safety Report 5804484-3 (Version None)
Quarter: 2008Q3

REPORT INFORMATION
  Report Type: 
  Country: None (occurrence: None)
  Receive Date: 20080709
  Receipt Date: 20080627
  Transmission Date: 20090109
  Serious: Yes (Hospitalization)
  Sender: FDA-Public Use
  Company Number: B0527301A

PATIENT
  Age: 83 Year
  Sex: Female

DRUGS (5)
  1. AUGMENTIN '125' [Suspect]
     Indication: BRONCHOPNEUMOPATHY
     Route: 048
     Dates: start: 20080420, end: 20080430
  2. DIOSMIL [Concomitant]
     Indication: DRUG USE FOR UNKNOWN INDICATION
     Route: 065
  3. NEXIUM [Concomitant]
     Indication: DRUG USE FOR UNKNOWN INDICATION
     Route: 065
  4. VASTAREL [Concomitant]
     Indication: DRUG USE FOR UNKNOWN INDICATION
     Route: 065
  5. KENZEN [Concomitant]
     Indication: DRUG USE FOR UNKNOWN INDICATION
     Route: 065

REACTIONS (6)
  - ASTHENIA [None]
  - BACTERIA STOOL IDENTIFIED [None]
  - DIARRHOEA [None]
  - INFLAMMATION [None]
  - PSEUDOMEMBRANOUS COLITIS [None]
  - VOMITING [None]
